FAERS Safety Report 9226746 (Version 1)
Quarter: 2013Q2

REPORT INFORMATION
  Report Type: Spontaneous
  Country: DE (occurrence: None)
  Receive Date: 20130410
  Receipt Date: 20130410
  Transmission Date: 20140414
  Serious: Yes (Hospitalization)
  Sender: FDA-Public Use
  Company Number: FK201301109

PATIENT
  Age: 63 Year
  Sex: Male
  Weight: 62 kg

DRUGS (2)
  1. GEMCITABINE (GEMCITABINE) [Suspect]
     Indication: BRONCHIAL CARCINOMA
     Route: 042
  2. CARBOPLATIN (CARBOPLATIN) [Suspect]

REACTIONS (3)
  - Dyspnoea [None]
  - Ocular hyperaemia [None]
  - Rash [None]
